FAERS Safety Report 6756410-0 (Version None)
Quarter: 2010Q2

REPORT INFORMATION
  Report Type: 
  Country: None (occurrence: None)
  Receive Date: 20100604
  Receipt Date: 20100525
  Transmission Date: 20101027
  Serious: Yes (Other)
  Sender: FDA-Public Use
  Company Number: A0681943A

PATIENT
  Age: 36 Year
  Sex: Female
  Weight: 73.2 kg

DRUGS (12)
  1. AMERGE [Suspect]
     Indication: MIGRAINE
     Dosage: 5MG PER DAY
     Dates: start: 20070107, end: 20070107
  2. ADVAIR DISKUS 100/50 [Suspect]
     Indication: ASTHMA
  3. ALBUTEROL [Suspect]
     Indication: ASTHMA
  4. PROTONIX [Concomitant]
  5. SINGULAIR [Concomitant]
     Indication: ASTHMA
  6. NASACORT [Concomitant]
     Indication: ASTHMA
  7. IRON [Concomitant]
  8. AXERT [Concomitant]
     Indication: MIGRAINE
  9. CLINDAMYCIN [Concomitant]
     Indication: VAGINITIS BACTERIAL
  10. CEFTIN [Concomitant]
     Indication: VAGINITIS BACTERIAL
  11. MACRODANTIN [Concomitant]
     Indication: URINARY TRACT INFECTION
  12. CLARITHROMYCIN [Concomitant]
     Indication: DRUG USE FOR UNKNOWN INDICATION

REACTIONS (2)
  - ABORTION SPONTANEOUS [None]
  - DRUG EXPOSURE DURING PREGNANCY [None]
